FAERS Safety Report 7014229-X (Version None)
Quarter: 2010Q3

REPORT INFORMATION
  Report Type: 
  Country: None (occurrence: None)
  Receive Date: 20100927
  Receipt Date: 20100915
  Transmission Date: 20110219
  Serious: Yes (Other)
  Sender: FDA-Public Use
  Company Number: US-JNJFOC-20100905522

PATIENT
  Sex: Male
  Weight: 2.43 kg

DRUGS (8)
  1. PREZISTA [Suspect]
     Indication: DRUG EXPOSURE DURING PREGNANCY
     Route: 015
  2. INTELLENCE [Suspect]
     Indication: DRUG EXPOSURE DURING PREGNANCY
     Route: 065
  3. NORVIR [Concomitant]
     Indication: DRUG EXPOSURE DURING PREGNANCY
     Route: 015
  4. ISENTRESS [Concomitant]
     Indication: DRUG EXPOSURE DURING PREGNANCY
     Route: 015
  5. BACTRIM [Concomitant]
     Indication: DRUG EXPOSURE DURING PREGNANCY
     Route: 015
  6. COMBIVIR [Concomitant]
     Indication: DRUG EXPOSURE DURING PREGNANCY
     Route: 015
  7. VIRACEPT [Concomitant]
     Indication: DRUG EXPOSURE DURING PREGNANCY
     Route: 015
  8. AZT [Concomitant]
     Indication: DRUG EXPOSURE DURING PREGNANCY
     Route: 015

REACTIONS (1)
  - PREMATURE BABY [None]
